FAERS Safety Report 15705362 (Version 1)
Quarter: 2018Q4

REPORT INFORMATION
  Report Type: Spontaneous
  Country: US (occurrence: US)
  Receive Date: 20181210
  Receipt Date: 20181210
  Transmission Date: 20190205
  Serious: Yes (Other)
  Sender: FDA-Public Use
  Company Number: None

PATIENT
  Age: 22 Year
  Sex: Female
  Weight: 53.55 kg

DRUGS (4)
  1. DULERA [Concomitant]
     Active Substance: FORMOTEROL FUMARATE DIHYDRATE\MOMETASONE FUROATE
  2. CELEXA [Concomitant]
     Active Substance: CITALOPRAM HYDROBROMIDE
  3. TYLENOL [Concomitant]
     Active Substance: ACETAMINOPHEN
  4. SINGULAIR [Suspect]
     Active Substance: MONTELUKAST SODIUM
     Indication: ASTHMA
     Dosage: ?          QUANTITY:1 TABLET(S);?
     Route: 048

REACTIONS (12)
  - Mood swings [None]
  - Suicidal ideation [None]
  - Feelings of worthlessness [None]
  - Negative thoughts [None]
  - Anxiety [None]
  - Restlessness [None]
  - Headache [None]
  - Fatigue [None]
  - Depressed mood [None]
  - Decreased appetite [None]
  - Panic attack [None]
  - Nightmare [None]

NARRATIVE: CASE EVENT DATE: 20181206
